FAERS Safety Report 5728429-X (Version None)
Quarter: 2008Q2

REPORT INFORMATION
  Report Type: 
  Country: None (occurrence: None)
  Receive Date: 20080506
  Receipt Date: 20080428
  Transmission Date: 20081010
  Serious: Yes (Other)
  Sender: FDA-Public Use
  Company Number: HQWYE949628JAN05

PATIENT
  Sex: Female
  Weight: 77.18 kg

DRUGS (1)
  1. PREMPRO [Suspect]
     Dosage: UNSPECIFIED
     Route: 048
     Dates: start: 19990101, end: 20030101

REACTIONS (2)
  - BREAST CANCER [None]
  - THROMBOSIS [None]
